FAERS Safety Report 6466185-0 (Version None)
Quarter: 2009Q4

REPORT INFORMATION
  Report Type: 
  Country: None (occurrence: None)
  Receive Date: 20091202
  Receipt Date: 20091124
  Transmission Date: 20100525
  Serious: Yes (Hospitalization)
  Sender: FDA-Public Use
  Company Number: GB-ROCHE-499526

PATIENT
  Age: 35 Year
  Sex: Female
  Weight: 114.9 kg

DRUGS (6)
  1. ORLISTAT [Suspect]
     Indication: WEIGHT CONTROL
     Dosage: 360 MG / 1 DAY. DRUG WITHDRAWN
     Route: 048
     Dates: start: 20060925, end: 20061020
  2. BECLOMETHASONE DIPROPIONATE [Concomitant]
     Indication: ASTHMA
     Route: 055
  3. DEPO-PROVERA [Concomitant]
     Indication: CONTRACEPTION
     Route: 030
  4. NOVOMIX [Concomitant]
     Route: 058
  5. ALBUTEROL [Concomitant]
     Indication: ASTHMA
     Route: 055
  6. ALBUTEROL SULFATE AUTOHALER [Concomitant]
     Indication: ASTHMA
     Route: 055

REACTIONS (5)
  - ASTHENOPIA [None]
  - DIARRHOEA [None]
  - HYPOAESTHESIA FACIAL [None]
  - HYPOTENSION [None]
  - RENAL FAILURE [None]
